FAERS Safety Report 7798145-1 (Version None)
Quarter: 2011Q4

REPORT INFORMATION
  Report Type: 
  Country: None (occurrence: None)
  Receive Date: 20111004
  Receipt Date: 20110927
  Transmission Date: 20120403
  Serious: Yes (Hospitalization)
  Sender: FDA-Public Use
  Company Number: 20109213

PATIENT
  Sex: Male

DRUGS (1)
  1. LIORESAL [Suspect]
     Indication: MUSCLE SPASTICITY
     Dosage: MCG, DAILY, INTRATHECAL
     Route: 037

REACTIONS (8)
  - SOMNOLENCE [None]
  - HALLUCINATION, VISUAL [None]
  - GAIT DISTURBANCE [None]
  - MENTAL STATUS CHANGES [None]
  - OVERDOSE [None]
  - DISORIENTATION [None]
  - DEPRESSED LEVEL OF CONSCIOUSNESS [None]
  - HEART RATE DECREASED [None]
